FAERS Safety Report 5175244-4 (Version None)
Quarter: 2006Q4

REPORT INFORMATION
  Report Type: 
  Country: None (occurrence: None)
  Receive Date: 20061215
  Receipt Date: 20061207
  Transmission Date: 20070319
  Serious: Yes (Other)
  Sender: FDA-Public Use
  Company Number: US-SP-2006-03437

PATIENT
  Sex: Male

DRUGS (1)
  1. THERACYS [Suspect]
     Indication: BLADDER CANCER
     Route: 043

REACTIONS (4)
  - CYSTITIS [None]
  - OEDEMA PERIPHERAL [None]
  - SCROTAL OEDEMA [None]
  - WHEEZING [None]
